FAERS Safety Report 23342994 (Version 1)
Quarter: 2023Q4

REPORT INFORMATION
  Report Type: Spontaneous
  Country: US (occurrence: None)
  Receive Date: 20231226
  Receipt Date: 20231226
  Transmission Date: 20240109
  Serious: Yes (Hospitalization)
  Sender: FDA-Public Use
  Company Number: None

PATIENT
  Age: 68 Year
  Sex: Female

DRUGS (2)
  1. SILDENAFIL CITRATE [Suspect]
     Active Substance: SILDENAFIL CITRATE
     Indication: Pulmonary arterial hypertension
     Dosage: FREQUENCY : TWICE A DAY;?
     Route: 048
     Dates: start: 202108
  2. TREPROSTINIL [Suspect]
     Active Substance: TREPROSTINIL

REACTIONS (2)
  - Oxygen saturation decreased [None]
  - Blood pressure decreased [None]

NARRATIVE: CASE EVENT DATE: 20231221
